FAERS Safety Report 9419216 (Version 1)
Quarter: 2013Q3

REPORT INFORMATION
  Report Type: Spontaneous
  Country: US (occurrence: None)
  Receive Date: 20130722
  Receipt Date: 20130722
  Transmission Date: 20140515
  Serious: Yes (Other)
  Sender: FDA-Public Use
  Company Number: None

PATIENT
  Age: 44 Year
  Sex: Female
  Weight: 83.9 kg

DRUGS (1)
  1. DOXIL [Suspect]
     Indication: BREAST CANCER
     Route: 042
     Dates: start: 20130620

REACTIONS (7)
  - Anxiety [None]
  - Flushing [None]
  - Nausea [None]
  - Fatigue [None]
  - Flushing [None]
  - Ocular hyperaemia [None]
  - Ocular hyperaemia [None]
